FAERS Safety Report 7657375-X (Version None)
Quarter: 2011Q3

REPORT INFORMATION
  Report Type: 
  Country: None (occurrence: None)
  Receive Date: 20110804
  Receipt Date: 20110726
  Transmission Date: 20111222
  Serious: Yes (Hospitalization)
  Sender: FDA-Public Use
  Company Number: FR-PFIZER INC-2011170937

PATIENT
  Age: 49 Year
  Sex: Female

DRUGS (3)
  1. CYTARABINE [Suspect]
     Indication: ACUTE MYELOID LEUKAEMIA
     Dosage: 1620 MG, 2X/DAY
     Route: 042
     Dates: start: 20081028, end: 20081102
  2. NOVANTRONE [Suspect]
     Indication: ACUTE MYELOID LEUKAEMIA
     Dosage: 19.4 MG, 1X/DAY
     Route: 042
     Dates: start: 20081028, end: 20081029
  3. GEMTUZUMAB OZOGAMICIN [Suspect]
     Indication: ACUTE LEUKAEMIA
     Dosage: 9.7 MG, 1X/DAY
     Route: 042
     Dates: start: 20081031, end: 20081031

REACTIONS (1)
  - FEBRILE BONE MARROW APLASIA [None]
